FAERS Safety Report 5350560-1 (Version None)
Quarter: 2007Q2

REPORT INFORMATION
  Report Type: 
  Country: None (occurrence: None)
  Receive Date: 20070608
  Receipt Date: 20070524
  Transmission Date: 20071010
  Serious: Yes (Other)
  Sender: FDA-Public Use
  Company Number: CA-ASTRAZENECA-2007UW12960

PATIENT
  Age: 64 Year
  Sex: Female

DRUGS (8)
  1. CRESTOR [Suspect]
     Route: 048
     Dates: start: 20060310
  2. ADALAT [Concomitant]
  3. ALTACE [Concomitant]
  4. EZETROL [Concomitant]
  5. IMITREX [Concomitant]
  6. PARIET [Concomitant]
  7. CARBIDOPA [Concomitant]
  8. L-DOPA [Concomitant]

REACTIONS (1)
  - CHILLS [None]
